FAERS Safety Report 15707600 (Version 1)
Quarter: 2018Q4

REPORT INFORMATION
  Report Type: Spontaneous
  Country: US (occurrence: US)
  Receive Date: 20181127
  Receipt Date: 20181127
  Transmission Date: 20190205
  Serious: Yes (Other)
  Sender: FDA-Public Use
  Company Number: None

PATIENT
  Age: 65 Year
  Sex: Female
  Weight: 61.69 kg

DRUGS (11)
  1. DIPHENHYDRAMINE QD [Concomitant]
  2. VITAMIN D [Concomitant]
     Active Substance: CHOLECALCIFEROL
  3. GARLIQUE [Concomitant]
     Active Substance: GARLIC
  4. PANTOPRAZOLE [Concomitant]
     Active Substance: PANTOPRAZOLE
  5. LISINOPRIL. [Concomitant]
     Active Substance: LISINOPRIL
  6. BUPROPION. [Concomitant]
     Active Substance: BUPROPION
  7. BACLOFEN MUSCLE RELAXOR GENERIC LIORESAT 10MG [Suspect]
     Active Substance: BACLOFEN
     Indication: BACK PAIN
     Dosage: ?          QUANTITY:ONE TABLET;?
     Route: 048
     Dates: start: 20161208, end: 20161211
  8. KLONOPIN [Concomitant]
     Active Substance: CLONAZEPAM
  9. GINGER ROOT [Concomitant]
     Active Substance: GINGER
  10. XANAX 0.5MG [Concomitant]
  11. VITAMIN B12 [Concomitant]
     Active Substance: CYANOCOBALAMIN

REACTIONS (6)
  - Confusional state [None]
  - Product dispensing error [None]
  - Hallucination [None]
  - Product prescribing error [None]
  - Speech disorder [None]
  - Potentiating drug interaction [None]

NARRATIVE: CASE EVENT DATE: 20161208
